FAERS Safety Report 9771907 (Version 2)
Quarter: 2014Q2

REPORT INFORMATION
  Report Type: Spontaneous
  Country: US (occurrence: None)
  Receive Date: 20131001
  Receipt Date: 20140515
  Transmission Date: 20141212
  Serious: Yes (Death, Hospitalization, Other)
  Sender: FDA-Public Use
  Company Number: ADR-2013-01182

PATIENT
  Age: 65 Year
  Sex: Female

DRUGS (2)
  1. LIORESAL [Suspect]
     Indication: MUSCLE SPASTICITY
  2. BACLOFEN [Suspect]

REACTIONS (7)
  - Injury [None]
  - Wound dehiscence [None]
  - Device extrusion [None]
  - Drug withdrawal convulsions [None]
  - Sepsis [None]
  - Implant site cellulitis [None]
  - Implant site infection [None]
